FAERS Safety Report 8213307-7 (Version None)
Quarter: 2012Q1

REPORT INFORMATION
  Report Type: 
  Country: None (occurrence: None)
  Receive Date: 20120315
  Receipt Date: 20120313
  Transmission Date: 20120608
  Serious: Yes (Life-Threatening, Other)
  Sender: FDA-Public Use
  Company Number: PHEH2012US005788

PATIENT
  Sex: Female

DRUGS (1)
  1. DIOVAN HCT [Suspect]

REACTIONS (5)
  - ARTHRALGIA [None]
  - PULMONARY FIBROSIS [None]
  - DYSPNOEA [None]
  - FEELING ABNORMAL [None]
  - DRUG INTOLERANCE [None]
